FAERS Safety Report 21515747 (Version 1)
Quarter: 2022Q4

REPORT INFORMATION
  Report Type: 
  Country: None (occurrence: None)
  Receive Date: 20221027
  Receipt Date: 20221027
  Transmission Date: 20230113
  Serious: Yes (Other)
  Sender: FDA-Public Use
  Company Number: None

PATIENT
  Age: 25 Year
  Sex: Female

DRUGS (1)
  1. MYORISAN [Suspect]
     Active Substance: ISOTRETINOIN

REACTIONS (9)
  - Exposure during pregnancy [Not Recovered/Not Resolved]
  - Haemorrhage in pregnancy [Unknown]
  - Mean platelet volume increased [Unknown]
  - Very low density lipoprotein increased [Unknown]
  - White blood cell count increased [Unknown]
  - Blood triglycerides increased [Unknown]
  - High density lipoprotein decreased [Unknown]
  - Treatment noncompliance [Recovered/Resolved]
  - Inappropriate schedule of product administration [Recovered/Resolved]
